FAERS Safety Report 12773863 (Version 12)
Quarter: 2019Q4

REPORT INFORMATION
  Report Type: Report from Study
  Country: US (occurrence: US)
  Receive Date: 20160923
  Receipt Date: 20191105
  Transmission Date: 20200122
  Serious: Yes (Other)
  Sender: FDA-Public Use
  Company Number: PHHY2016US130238

PATIENT
  Age: 32 Year
  Sex: Female

DRUGS (1)
  1. GILENYA [Suspect]
     Active Substance: FINGOLIMOD HYDROCHLORIDE
     Indication: MULTIPLE SCLEROSIS
     Dosage: UNK, QD
     Route: 048

REACTIONS (15)
  - Hepatitis B surface antibody positive [Unknown]
  - Visual field defect [Unknown]
  - Vision blurred [Unknown]
  - CSF oligoclonal band [Unknown]
  - Hypoaesthesia [Unknown]
  - Eye disorder [Unknown]
  - Dizziness [Recovered/Resolved]
  - Multiple sclerosis [Unknown]
  - Cognitive disorder [Recovered/Resolved]
  - Lymphocyte count decreased [Unknown]
  - Blood immunoglobulin G increased [Unknown]
  - Dyschromatopsia [Unknown]
  - Eye pain [Unknown]
  - Fatigue [Unknown]
  - Optic neuritis [Unknown]

NARRATIVE: CASE EVENT DATE: 20160409
